FAERS Safety Report 24185501 (Version 1)
Quarter: 2024Q3

REPORT INFORMATION
  Report Type: Report from Study
  Country: CA (occurrence: CA)
  Receive Date: 20240807
  Receipt Date: 20240807
  Transmission Date: 20241017
  Serious: Yes (Death, Hospitalization, Other)
  Sender: APOTEX
  Company Number: CA-APOTEX-2024AP008978

PATIENT
  Sex: Male
  Weight: 106 kg

DRUGS (3)
  1. LENALIDOMIDE [Suspect]
     Active Substance: LENALIDOMIDE
     Indication: Plasma cell myeloma
     Dosage: 5 MILLIGRAM, QD  (28 DAYS)
     Route: 048
     Dates: start: 20240108, end: 20240723
  2. LENALIDOMIDE [Suspect]
     Active Substance: LENALIDOMIDE
     Indication: Acute myeloid leukaemia recurrent
     Dosage: 10 MILLIGRAM, QD
     Route: 048
     Dates: start: 20240729, end: 20240729
  3. AZACITIDINE [Concomitant]
     Active Substance: AZACITIDINE
     Indication: Acute myeloid leukaemia recurrent
     Dosage: 200 MILLIGRAM, QD (5 DAYS CYCLE) EVERY 28 DAYS
     Route: 058
     Dates: start: 20240115, end: 20240729

REACTIONS (6)
  - Cardiac arrest [Fatal]
  - Hyperleukocytosis [Unknown]
  - Respiratory distress [Unknown]
  - Vomiting [Unknown]
  - Diarrhoea [Unknown]
  - Off label use [Unknown]

NARRATIVE: CASE EVENT DATE: 20240101
